FAERS Safety Report 7534565-8 (Version None)
Quarter: 2011Q2

REPORT INFORMATION
  Report Type: 
  Country: None (occurrence: None)
  Receive Date: 20110609
  Receipt Date: 20090619
  Transmission Date: 20111010
  Serious: Yes (Hospitalization, Other)
  Sender: FDA-Public Use
  Company Number: PHHO2005CA12533

PATIENT
  Sex: Male

DRUGS (39)
  1. MYCOPHENOLATE MEFETIL [Suspect]
     Dosage: 1000 MG, QD
     Route: 048
     Dates: start: 20050504
  2. SOLU-MEDROL [Suspect]
     Indication: RENAL TRANSPLANT
     Dosage: 125 MG, QD
     Route: 042
     Dates: start: 20040903
  3. SOLU-MEDROL [Suspect]
     Dosage: 40 MG, QD
     Route: 042
     Dates: start: 20040904, end: 20040908
  4. SEPTRA [Concomitant]
  5. METOPROLOL [Concomitant]
  6. ASPIRIN [Concomitant]
  7. MONOPRIL [Concomitant]
  8. AVANDIA [Concomitant]
  9. LEVOFLOXACIN [Concomitant]
  10. MYCOPHENOLATE MEFETIL [Suspect]
     Dosage: 3000 MG, QD
     Route: 048
     Dates: start: 20040905
  11. MYCOPHENOLATE MEFETIL [Suspect]
     Dosage: 2000 MG, QD
     Route: 048
     Dates: start: 20041124
  12. MYCOPHENOLATE MEFETIL [Suspect]
     Dosage: 500 MG, QD
     Route: 048
     Dates: start: 20050412
  13. LIPITOR [Concomitant]
  14. CYCLOSPORINE [Suspect]
     Dosage: 500 MG, QD
     Dates: start: 20041029
  15. MYCOPHENOLATE MEFETIL [Suspect]
     Dosage: 2000 MG, QD
     Route: 048
     Dates: start: 20050523
  16. CLONIDINE [Concomitant]
  17. PRILOSEC [Concomitant]
  18. MOTILIUM [Concomitant]
  19. FLOMAX [Concomitant]
  20. MULTI-VITAMINS [Concomitant]
  21. K-DUR [Concomitant]
  22. MYCOPHENOLATE MEFETIL [Suspect]
     Dosage: 2000 MG, QD
     Route: 048
     Dates: start: 20040913
  23. MYCOPHENOLATE MEFETIL [Suspect]
     Dosage: 1000 MG, QD
     Route: 048
     Dates: start: 20050308, end: 20050312
  24. SOLU-MEDROL [Suspect]
     Dosage: 40 MG, QD
     Route: 042
     Dates: end: 20050415
  25. CYCLOSPORINE [Suspect]
     Dosage: 400 MG, QD
     Route: 048
     Dates: start: 20040904, end: 20041028
  26. MYCOPHENOLATE MEFETIL [Suspect]
     Indication: RENAL TRANSPLANT
     Dosage: 1000 MG, QD
     Route: 048
     Dates: start: 20040902
  27. MYCOPHENOLATE MEFETIL [Suspect]
     Dosage: 1000 MG, QD
     Route: 048
     Dates: start: 20050124, end: 20050225
  28. PREDNISONE [Suspect]
     Indication: RENAL TRANSPLANT
     Dosage: 30 MG, QD
     Dates: start: 20040908
  29. PREDNISONE [Suspect]
     Dosage: 10 MG, QD
     Dates: start: 20041029
  30. INSULIN [Concomitant]
  31. LABETALOL [Concomitant]
  32. COTRIM [Concomitant]
  33. NIFEDIPINE [Concomitant]
  34. NITROGLYCERIN [Concomitant]
  35. CYCLOSPORINE [Suspect]
     Indication: RENAL TRANSPLANT
     Dosage: 350 MG/DAY
     Route: 048
     Dates: start: 20040902, end: 20040903
  36. MYCOPHENOLATE MEFETIL [Suspect]
     Dosage: 500 MG, QD
     Route: 048
     Dates: start: 20041028
  37. GANCICLOVIR [Concomitant]
  38. CIPROFLOXACIN HCL [Concomitant]
  39. NYSTATIN [Concomitant]

REACTIONS (19)
  - PULMONARY OEDEMA [None]
  - HYPOXIA [None]
  - COUGH [None]
  - COMPLICATIONS OF TRANSPLANTED KIDNEY [None]
  - ORTHOPNOEA [None]
  - RENAL TUBULAR NECROSIS [None]
  - WOUND DEHISCENCE [None]
  - POST PROCEDURAL URINE LEAK [None]
  - CARDIAC FAILURE CONGESTIVE [None]
  - HYPERTENSION [None]
  - INSOMNIA [None]
  - DYSPNOEA [None]
  - NASAL CONGESTION [None]
  - PLEURAL EFFUSION [None]
  - BODY TEMPERATURE INCREASED [None]
  - SINUS CONGESTION [None]
  - FLUID OVERLOAD [None]
  - DIASTOLIC DYSFUNCTION [None]
  - NASOPHARYNGITIS [None]
